FAERS Safety Report 9710294 (Version 1)
Quarter: 2013Q4

REPORT INFORMATION
  Report Type: Spontaneous
  Country: US (occurrence: US)
  Receive Date: 20131126
  Receipt Date: 20131126
  Transmission Date: 20140711
  Serious: No
  Sender: FDA-Public Use
  Company Number: US-BRISTOL-MYERS SQUIBB COMPANY-18767319

PATIENT
  Age: 84 Year
  Sex: Female
  Weight: 99.77 kg

DRUGS (1)
  1. BYETTA [Suspect]
     Dosage: STARTED BYETTA 10MCG ON 03APR2013?5MCG DOSE FOR A MONTH PRIOR
     Dates: start: 20130403

REACTIONS (2)
  - Blood glucose increased [Unknown]
  - Heart rate decreased [Unknown]
